FAERS Safety Report 5903094-7 (Version None)
Quarter: 2008Q3

REPORT INFORMATION
  Report Type: 
  Country: None (occurrence: None)
  Receive Date: 20080930
  Receipt Date: 20080919
  Transmission Date: 20090109
  Serious: Yes (Hospitalization)
  Sender: FDA-Public Use
  Company Number: JP-ROCHE-572912

PATIENT
  Sex: Male
  Weight: 50.4 kg

DRUGS (14)
  1. CAPECITABINE [Suspect]
     Indication: GASTRIC CANCER
     Dosage: BATCH NO. REPORTED AS: 90871 (150 MG TAB), 79731 (500 MG TAB) , FREQUENCY: D1-D14Q3W
     Route: 048
     Dates: start: 20080411, end: 20080626
  2. CAPECITABINE [Suspect]
     Route: 048
     Dates: start: 20080819
  3. BLINDED BEVACIZUMAB [Suspect]
     Indication: GASTRIC CANCER
     Dosage: FORM REPORTED AS: INFUSION, FREQUENCY REPORTED AS D1 Q3W. PERMANENTLY DISCONTINUED.
     Route: 042
     Dates: start: 20080411, end: 20080625
  4. CISPLATIN [Suspect]
     Indication: GASTRIC CANCER
     Dosage: FORM REPORTED AS: INFUSION, FREQUENCY: D1Q3W
     Route: 042
     Dates: start: 20080411, end: 20080625
  5. CISPLATIN [Suspect]
     Route: 042
     Dates: start: 20080819
  6. VOGLIBOSE [Concomitant]
     Dates: start: 20060401, end: 20080626
  7. MOSAPRIDE CITRATE [Concomitant]
     Dates: start: 20060401, end: 20080626
  8. LOSARTAN POTASSIUM [Concomitant]
     Dates: start: 20060401, end: 20080626
  9. AMLODIPINE BESYLATE [Concomitant]
     Dates: start: 20080502, end: 20080626
  10. FERROUS SULFATE [Concomitant]
     Dosage: DRUG NAME REPORTED AS: DRIED FERROUS SULFATE
     Dates: start: 20080623, end: 20080626
  11. LOXOPROFEN SODIUM [Concomitant]
     Dosage: DRUG NAME REPORTED AS: LOXOPROFEN SODIUM HYDRATE, FREQUENCY:PRN
     Dates: start: 20080624, end: 20080626
  12. DOMPERIDONE [Concomitant]
     Dosage: FREQUENCY: PRN
     Dates: start: 20080626, end: 20080626
  13. DICLOFENAC SODIUM [Concomitant]
     Dates: start: 20080626, end: 20080626
  14. PENTAZOCINE LACTATE [Concomitant]
     Dates: start: 20080626, end: 20080627

REACTIONS (1)
  - GASTRIC PERFORATION [None]
